FAERS Safety Report 4343544-3 (Version None)
Quarter: 2004Q2

REPORT INFORMATION
  Report Type: 
  Country: None (occurrence: None)
  Receive Date: 20040419
  Receipt Date: 20040407
  Transmission Date: 20050107
  Serious: Yes (Other)
  Sender: FDA-Public Use
  Company Number: S03-USA-05281-01

PATIENT
  Age: 45 Year
  Sex: Female

DRUGS (3)
  1. CELEXA [Suspect]
     Dosage: 15 MG QD PO
     Route: 048
  2. SERZONE [Suspect]
     Dosage: 500 MG QD
     Dates: start: 20000101
  3. VICODIN [Suspect]

REACTIONS (1)
  - PERICARDIAL EFFUSION [None]
